FAERS Safety Report 23403931 (Version 2)
Quarter: 2024Q1

REPORT INFORMATION
  Report Type: Spontaneous
  Country: US (occurrence: US)
  Receive Date: 20240116
  Receipt Date: 20240129
  Transmission Date: 20240409
  Serious: Yes (Other)
  Sender: FDA-Public Use
  Company Number: US-TAKEDA-2024TUS003352

PATIENT
  Age: 21 Year
  Sex: Female
  Weight: 105 kg

DRUGS (5)
  1. HUMAN IMMUNOGLOBULIN G [Suspect]
     Active Substance: HUMAN IMMUNOGLOBULIN G
     Indication: Aplastic anaemia
     Dosage: 60 GRAM
     Route: 042
     Dates: start: 20231207
  2. CYCLOSPORINE [Concomitant]
     Active Substance: CYCLOSPORINE
     Indication: Aplastic anaemia
     Dosage: 150 MILLIGRAM, Q12H
     Route: 065
  3. ATGAM [Concomitant]
     Active Substance: EQUINE THYMOCYTE IMMUNE GLOBULIN
     Indication: Aplastic anaemia
     Dosage: 4396 MILLIGRAM
     Route: 065
  4. ELTROMBOPAG [Concomitant]
     Active Substance: ELTROMBOPAG
     Indication: Aplastic anaemia
     Dosage: 150 MILLIGRAM
     Route: 065
  5. METHYLPREDNISOLONE [Concomitant]
     Active Substance: METHYLPREDNISOLONE
     Indication: Aplastic anaemia
     Dosage: 220 MILLIGRAM
     Route: 065

REACTIONS (1)
  - Rhesus antibodies positive [Recovered/Resolved]

NARRATIVE: CASE EVENT DATE: 20231207
